FAERS Safety Report 8227555-3 (Version None)
Quarter: 2012Q1

REPORT INFORMATION
  Report Type: 
  Country: None (occurrence: None)
  Receive Date: 20120322
  Receipt Date: 20120313
  Transmission Date: 20120608
  Serious: Yes (Other)
  Sender: FDA-Public Use
  Company Number: PE-BRISTOL-MYERS SQUIBB COMPANY-16453979

PATIENT
  Age: 60 Year
  Sex: Female

DRUGS (1)
  1. DASATINIB [Suspect]

REACTIONS (2)
  - MYELOFIBROSIS [None]
  - PANCYTOPENIA [None]
